FAERS Safety Report 5567232-0 (Version None)
Quarter: 2007Q4

REPORT INFORMATION
  Report Type: 
  Country: None (occurrence: None)
  Receive Date: 20071219
  Receipt Date: 20071127
  Transmission Date: 20080405
  Serious: No
  Sender: FDA-Public Use
  Company Number: US-BOEHRINGER INGELHEIM PHARMACEUTICALS, INC.-2007-BP-25385BP

PATIENT
  Sex: Male

DRUGS (2)
  1. FLOMAX [Suspect]
     Indication: PROSTATOMEGALY
  2. ENALAPRIL MALEATE [Concomitant]
     Indication: BLOOD PRESSURE

REACTIONS (2)
  - EYE DISORDER [None]
  - PAIN IN JAW [None]
